FAERS Safety Report 6032764-8 (Version None)
Quarter: 2009Q1

REPORT INFORMATION
  Report Type: 
  Country: None (occurrence: None)
  Receive Date: 20090109
  Receipt Date: 20081231
  Transmission Date: 20090719
  Serious: Yes (Hospitalization)
  Sender: FDA-Public Use
  Company Number: US-ROCHE-587411

PATIENT
  Sex: Male
  Weight: 78 kg

DRUGS (6)
  1. CAPECITABINE [Suspect]
     Dosage: 2 WEEKS ON, 1 WEEK OFF
     Route: 048
     Dates: start: 20080807, end: 20081016
  2. ZOFRAN [Concomitant]
     Indication: ANTIEMETIC SUPPORTIVE CARE
     Route: 048
     Dates: start: 20070801
  3. CREON [Concomitant]
     Dosage: DRUG: CREON 20
     Route: 048
     Dates: start: 20080526
  4. MORPHINE [Concomitant]
     Indication: PAIN
     Route: 048
     Dates: start: 20070801
  5. VERAPAMIL [Concomitant]
     Indication: HYPERTENSION
     Route: 048
     Dates: start: 20070801
  6. PROTONIX [Concomitant]
     Route: 048
     Dates: start: 20070801

REACTIONS (4)
  - ABDOMINAL PAIN UPPER [None]
  - BACTERAEMIA [None]
  - MALIGNANT NEOPLASM PROGRESSION [None]
  - PYREXIA [None]
